FAERS Safety Report 6044426-1 (Version None)
Quarter: 2009Q1

REPORT INFORMATION
  Report Type: 
  Country: None (occurrence: None)
  Receive Date: 20090115
  Receipt Date: 20090115
  Transmission Date: 20090719
  Serious: Yes (Hospitalization)
  Sender: FDA-Public Use
  Company Number: None

PATIENT
  Age: 71 Year
  Sex: Male
  Weight: 86.637 kg

DRUGS (1)
  1. VIDAZA [Suspect]
     Indication: MYELODYSPLASTIC SYNDROME
     Dosage: 108MG EVERY OTHER DAY, X2WEEKS Q4WEEKS : SUBCUTANEOUS
     Route: 058
     Dates: start: 20080909, end: 20081229

REACTIONS (14)
  - ATELECTASIS [None]
  - ATRIAL FIBRILLATION [None]
  - BLOOD MAGNESIUM DECREASED [None]
  - CARDIAC FAILURE CONGESTIVE [None]
  - CARDIOMEGALY [None]
  - CONDITION AGGRAVATED [None]
  - DYSPNOEA [None]
  - EJECTION FRACTION DECREASED [None]
  - FATIGUE [None]
  - HAEMOGLOBIN DECREASED [None]
  - PANCYTOPENIA [None]
  - PLEURAL EFFUSION [None]
  - PULMONARY CONGESTION [None]
  - THROMBOCYTOPENIA [None]
